FAERS Safety Report 6755859-X (Version None)
Quarter: 2010Q2

REPORT INFORMATION
  Report Type: 
  Country: None (occurrence: None)
  Receive Date: 20100604
  Receipt Date: 20100521
  Transmission Date: 20101027
  Serious: Yes (Hospitalization)
  Sender: FDA-Public Use
  Company Number: US-ASTRAZENECA-2009UW07498

PATIENT
  Age: 12945 Day
  Sex: Female

DRUGS (1)
  1. NEXIUM [Suspect]
     Route: 048

REACTIONS (5)
  - CARDIAC ARREST [None]
  - CHEST PAIN [None]
  - DRUG DOSE OMISSION [None]
  - DYSPEPSIA [None]
  - INCORRECT DOSE ADMINISTERED [None]
